FAERS Safety Report 5971281-8 (Version None)
Quarter: 2008Q4

REPORT INFORMATION
  Report Type: 
  Country: None (occurrence: None)
  Receive Date: 20081128
  Receipt Date: 20081121
  Transmission Date: 20090506
  Serious: Yes (Other)
  Sender: FDA-Public Use
  Company Number: FR-PFIZER INC-2008090124

PATIENT
  Sex: Male
  Weight: 82 kg

DRUGS (11)
  1. TAHOR [Suspect]
     Indication: INFARCTION
     Route: 048
     Dates: start: 20080917, end: 20080926
  2. TAHOR [Suspect]
     Indication: DYSLIPIDAEMIA
  3. ACETYLSALICYLIC ACID SRT [Concomitant]
  4. DRUG, UNSPECIFIED [Concomitant]
  5. KARDEGIC [Concomitant]
     Route: 048
     Dates: start: 20080917
  6. PLAVIX [Concomitant]
     Route: 048
     Dates: start: 20080917
  7. CARDENSIEL [Concomitant]
     Route: 048
     Dates: start: 20080917
  8. COVERSYL [Concomitant]
     Route: 048
     Dates: start: 20080917
  9. INSPRA [Concomitant]
     Route: 048
     Dates: start: 20080917
  10. LASIX [Concomitant]
     Route: 048
     Dates: start: 20080917
  11. KALEORID [Concomitant]
     Dosage: DAILY DOSE:600MG-FREQ:IN THE MORNING, AFTERNOON AND EVENING
     Route: 048
     Dates: start: 20080917

REACTIONS (2)
  - CELL DEATH [None]
  - TRANSAMINASES INCREASED [None]
